FAERS Safety Report 8823282 (Version 49)
Quarter: 2020Q2

REPORT INFORMATION
  Report Type: Report from Study
  Country: CA (occurrence: CA)
  Receive Date: 20121003
  Receipt Date: 20200616
  Transmission Date: 20200714
  Serious: Yes (Hospitalization, Other)
  Sender: FDA-Public Use
  Company Number: CA-ROCHE-1138095

PATIENT
  Age: 64 Year
  Sex: Female
  Weight: 82.1 kg

DRUGS (15)
  1. OMEGA 3 [DOCOSAHEXAENOIC ACID;EICOSAPENTAENOIC ACID] [Concomitant]
     Active Substance: DOCONEXENT\ICOSAPENT
  2. LOSEC [Concomitant]
     Active Substance: OMEPRAZOLE
  3. ASA [Concomitant]
     Active Substance: ASPIRIN
  4. ACETAMINOPHEN. [Concomitant]
     Active Substance: ACETAMINOPHEN
     Indication: PREMEDICATION
     Route: 048
     Dates: start: 20120905
  5. MIRTAZAPINE. [Concomitant]
     Active Substance: MIRTAZAPINE
  6. RITUXAN [Suspect]
     Active Substance: RITUXIMAB
     Indication: RHEUMATOID ARTHRITIS
     Dosage: OUTSIDE RPAP
     Route: 042
     Dates: start: 201201
  7. METHYLPREDNISOLONE. [Concomitant]
     Active Substance: METHYLPREDNISOLONE
  8. DIPHENHYDRAMINE HCL [Concomitant]
     Active Substance: DIPHENHYDRAMINE HYDROCHLORIDE
     Indication: PREMEDICATION
     Route: 048
     Dates: start: 20120905
  9. BIOSIL [Concomitant]
  10. OMEPRAZOLE. [Concomitant]
     Active Substance: OMEPRAZOLE
  11. RITUXAN [Suspect]
     Active Substance: RITUXIMAB
     Dosage: LAST DOSE OF RITUXIMAB ON 18/NOV/2013?DATE OF MOST RECENT DOSE OF RITUXIMAB: 13/SEP/2017?DATE OF MOS
     Route: 042
     Dates: start: 20120905, end: 20200206
  12. TRAMACET [Suspect]
     Active Substance: ACETAMINOPHEN\TRAMADOL
     Indication: PRODUCT USED FOR UNKNOWN INDICATION
     Route: 065
  13. RITUXAN [Suspect]
     Active Substance: RITUXIMAB
     Route: 042
     Dates: start: 20120905, end: 20200206
  14. ATACAND [Concomitant]
     Active Substance: CANDESARTAN CILEXETIL
  15. ARAVA [Concomitant]
     Active Substance: LEFLUNOMIDE

REACTIONS (40)
  - Tooth disorder [Unknown]
  - Wound infection [Not Recovered/Not Resolved]
  - Lower respiratory tract infection [Recovering/Resolving]
  - Oxygen saturation decreased [Unknown]
  - Alopecia [Not Recovered/Not Resolved]
  - Weight increased [Unknown]
  - Laryngitis [Recovered/Resolved]
  - Rales [Unknown]
  - Off label use [Unknown]
  - Blood pressure diastolic abnormal [Unknown]
  - Localised infection [Recovered/Resolved]
  - Nasopharyngitis [Unknown]
  - Sinus congestion [Not Recovered/Not Resolved]
  - Wheezing [Unknown]
  - Iron deficiency anaemia [Unknown]
  - Arthropathy [Unknown]
  - Arthralgia [Unknown]
  - Respiratory disorder [Unknown]
  - Pain [Recovered/Resolved]
  - Haemoglobin decreased [Unknown]
  - Pyrexia [Unknown]
  - Hypertension [Not Recovered/Not Resolved]
  - Malaise [Unknown]
  - Tooth abscess [Unknown]
  - Pulmonary fibrosis [Not Recovered/Not Resolved]
  - Abdominal pain [Not Recovered/Not Resolved]
  - Oxygen saturation decreased [Unknown]
  - Blood pressure fluctuation [Unknown]
  - Therapeutic product effect decreased [Unknown]
  - Hypertension [Unknown]
  - Hormone level abnormal [Unknown]
  - Balance disorder [Unknown]
  - Bronchitis [Recovering/Resolving]
  - Productive cough [Not Recovered/Not Resolved]
  - Blood pressure systolic increased [Unknown]
  - Intentional product use issue [Unknown]
  - Heart rate increased [Unknown]
  - Dyspnoea [Recovered/Resolved]
  - Transient ischaemic attack [Unknown]
  - Cough [Unknown]

NARRATIVE: CASE EVENT DATE: 20120921
